FAERS Safety Report 16038779 (Version 1)
Quarter: 2019Q1

REPORT INFORMATION
  Report Type: Spontaneous
  Country: US (occurrence: US)
  Receive Date: 20190305
  Receipt Date: 20190305
  Transmission Date: 20190418
  Serious: Yes (Other)
  Sender: FDA-Public Use
  Company Number: US-CONCORDIA PHARMACEUTICALS INC.-GSH201903-000486

PATIENT
  Age: 67 Year
  Sex: Female

DRUGS (2)
  1. HYDROXYCHLOROQUINE 200 MG [Suspect]
     Active Substance: HYDROXYCHLOROQUINE
     Indication: ARTHRITIS
     Dosage: DOUBLED DOSE
  2. HYDROXYCHLOROQUINE 200 MG [Suspect]
     Active Substance: HYDROXYCHLOROQUINE
     Indication: FOLLICULITIS
     Dosage: LOW DOSE

REACTIONS (2)
  - Tachycardia [Unknown]
  - Product use in unapproved indication [Unknown]
